FAERS Safety Report 23399820 (Version 1)
Quarter: 2024Q1

REPORT INFORMATION
  Report Type: Spontaneous
  Country: AU (occurrence: AU)
  Receive Date: 20240114
  Receipt Date: 20240114
  Transmission Date: 20240410
  Serious: Yes (Life-Threatening, Hospitalization, Other)
  Sender: FDA-Public Use
  Company Number: AU-AMGEN-AUSSP2024007626

PATIENT
  Age: 37 Year
  Sex: Male

DRUGS (9)
  1. ADALIMUMAB [Suspect]
     Active Substance: ADALIMUMAB\ISOPROPYL ALCOHOL
     Indication: Product used for unknown indication
     Dosage: UNK
     Route: 065
  2. PROLIA [Suspect]
     Active Substance: DENOSUMAB
     Indication: Osteoporosis
     Dosage: UNK
     Route: 065
     Dates: start: 2023
  3. INFLIXIMAB [Suspect]
     Active Substance: INFLIXIMAB
     Indication: Product used for unknown indication
     Dosage: UNK
     Route: 065
  4. UPADACITINIB [Suspect]
     Active Substance: UPADACITINIB
     Indication: Product used for unknown indication
     Dosage: UNK
     Route: 065
  5. AZATHIOPRINE [Suspect]
     Active Substance: AZATHIOPRINE
     Indication: Product used for unknown indication
     Dosage: UNK
     Route: 065
  6. VEDOLIZUMAB [Suspect]
     Active Substance: VEDOLIZUMAB
     Indication: Product used for unknown indication
     Dosage: UNK
     Route: 065
  7. USTEKINUMAB [Suspect]
     Active Substance: USTEKINUMAB
     Indication: Product used for unknown indication
     Dosage: UNK
     Route: 065
  8. FERINJECT [Concomitant]
     Active Substance: FERRIC CARBOXYMALTOSE
     Dosage: UNK
  9. IRON ISOMALTOSIDE 1000 [Concomitant]
     Active Substance: IRON ISOMALTOSIDE 1000
     Dosage: UNK

REACTIONS (15)
  - Blood calcium decreased [Unknown]
  - Blood phosphorus decreased [Unknown]
  - Crohn^s disease [Not Recovered/Not Resolved]
  - Hypocalcaemia [Recovered/Resolved]
  - Hypophosphataemia [Recovered/Resolved]
  - Obstruction [Unknown]
  - Weight decreased [Unknown]
  - Anorectal disorder [Unknown]
  - C-reactive protein increased [Unknown]
  - Blood albumin decreased [Unknown]
  - Drug ineffective [Unknown]
  - Faecal calprotectin increased [Not Recovered/Not Resolved]
  - Lymphopenia [Not Recovered/Not Resolved]
  - Haemoglobin decreased [Unknown]
  - Paraesthesia oral [Unknown]

NARRATIVE: CASE EVENT DATE: 20220101
